FAERS Safety Report 4519813-0 (Version None)
Quarter: 2004Q4

REPORT INFORMATION
  Report Type: 
  Country: None (occurrence: None)
  Receive Date: 20041207
  Receipt Date: 20041201
  Transmission Date: 20050328
  Serious: Yes (Hospitalization)
  Sender: FDA-Public Use
  Company Number: CH-JNJFOC-20041106169

PATIENT
  Age: 50 Year
  Sex: Male

DRUGS (7)
  1. RISPERDAL [Suspect]
     Indication: SCHIZOPHRENIA
     Route: 049
  2. TARIVID [Suspect]
  3. LIBRAX [Concomitant]
     Route: 049
  4. LIBRAX [Concomitant]
     Indication: DEPRESSION
     Dosage: 1 TAB/DAY
     Route: 049
  5. ENATEC [Concomitant]
     Indication: ESSENTIAL HYPERTENSION
     Route: 049
  6. SEMAP [Concomitant]
  7. SEMAP [Concomitant]

REACTIONS (4)
  - BLOOD CREATINE PHOSPHOKINASE INCREASED [None]
  - CHEST PAIN [None]
  - DRUG INTERACTION [None]
  - FATIGUE [None]
